FAERS Safety Report 9457419 (Version 1)
Quarter: 2013Q3

REPORT INFORMATION
  Report Type: Spontaneous
  Country: US (occurrence: None)
  Receive Date: 20130812
  Receipt Date: 20130812
  Transmission Date: 20140515
  Serious: Yes (Other)
  Sender: FDA-Public Use
  Company Number: None

PATIENT
  Age: 44 Year
  Sex: Female
  Weight: 72.58 kg

DRUGS (2)
  1. VIIBYRD [Suspect]
     Indication: DEPRESSION
     Route: 048
     Dates: start: 20130624, end: 20130805
  2. VIIBYRD [Suspect]
     Indication: ANXIETY
     Route: 048
     Dates: start: 20130624, end: 20130805

REACTIONS (8)
  - Gait disturbance [None]
  - Discomfort [None]
  - Insomnia [None]
  - Blister [None]
  - Scab [None]
  - Skin exfoliation [None]
  - Skin depigmentation [None]
  - Hypokinesia [None]
